FAERS Safety Report 11837189 (Version 2)
Quarter: 2017Q2

REPORT INFORMATION
  Report Type: Spontaneous
  Country: US (occurrence: US)
  Receive Date: 20151215
  Receipt Date: 20170413
  Transmission Date: 20170829
  Serious: Yes (Death, Other)
  Sender: FDA-Public Use
  Company Number: US-PFIZER INC-2015422138

PATIENT
  Age: 55 Year
  Sex: Female
  Weight: 79 kg

DRUGS (1)
  1. REVATIO [Suspect]
     Active Substance: SILDENAFIL CITRATE
     Indication: LUNG DISORDER
     Dosage: 20 MG, UNK

REACTIONS (7)
  - Cardiac failure congestive [Fatal]
  - Incorrect dosage administered [Unknown]
  - Dyspnoea [Unknown]
  - Emphysema [Fatal]
  - Feeling abnormal [Unknown]
  - Drug prescribing error [Unknown]
  - Asthenia [Unknown]
